FAERS Safety Report 14071511 (Version 1)
Quarter: 2017Q4

REPORT INFORMATION
  Report Type: Spontaneous
  Country: US (occurrence: US)
  Receive Date: 20171011
  Receipt Date: 20171011
  Transmission Date: 20180321
  Serious: No
  Sender: FDA-Public Use
  Company Number: PHEH2017US032291

PATIENT

DRUGS (1)
  1. VIVELLE-DOT [Suspect]
     Active Substance: ESTRADIOL
     Indication: PRODUCT USED FOR UNKNOWN INDICATION
     Dosage: 1 MG, QD
     Route: 062

REACTIONS (7)
  - Feeling abnormal [Unknown]
  - Weight increased [Unknown]
  - Crying [Unknown]
  - Underdose [Unknown]
  - Fatigue [Unknown]
  - Hot flush [Unknown]
  - Alopecia [Unknown]
